FAERS Safety Report 5762712-7 (Version None)
Quarter: 2008Q2

REPORT INFORMATION
  Report Type: 
  Country: None (occurrence: None)
  Receive Date: 20080609
  Receipt Date: 20080526
  Transmission Date: 20081010
  Serious: Yes (Hospitalization)
  Sender: FDA-Public Use
  Company Number: BG-MERCK-0805HUN00009

PATIENT
  Age: 31 Year
  Sex: Female
  Weight: 62 kg

DRUGS (2)
  1. FOSAMAX [Suspect]
     Indication: OSTEONECROSIS
     Route: 048
     Dates: start: 20070816, end: 20080520
  2. ESCIN [Concomitant]
     Indication: OSTEONECROSIS
     Route: 065
     Dates: start: 20070701, end: 20071001

REACTIONS (1)
  - BLINDNESS UNILATERAL [None]
